FAERS Safety Report 15124704 (Version 1)
Quarter: 2018Q3

REPORT INFORMATION
  Report Type: Spontaneous
  Country: US (occurrence: US)
  Receive Date: 20180710
  Receipt Date: 20180710
  Transmission Date: 20181010
  Serious: No
  Sender: FDA-Public Use
  Company Number: US-PFIZER INC-2018192835

PATIENT
  Age: 50 Year
  Sex: Female
  Weight: 89.81 kg

DRUGS (3)
  1. GENOTROPIN MQ [Suspect]
     Active Substance: SOMATROPIN
     Indication: GROWTH HORMONE DEFICIENCY
     Dosage: 0.4 MG, ONCE DAILY (TAKEN BEFORE SHE WENT TO BED AT NIGHT)
     Dates: start: 201705
  2. GENOTROPIN MQ [Suspect]
     Active Substance: SOMATROPIN
     Indication: CORTISOL DEFICIENCY
  3. GENOTROPIN MQ [Suspect]
     Active Substance: SOMATROPIN
     Indication: ASTHENIA

REACTIONS (3)
  - Fatigue [Unknown]
  - Drug dose omission [Unknown]
  - Malaise [Unknown]

NARRATIVE: CASE EVENT DATE: 20180507
